FAERS Safety Report 11875583 (Version 3)
Quarter: 2016Q4

REPORT INFORMATION
  Report Type: Spontaneous
  Country: DK (occurrence: DK)
  Receive Date: 20151229
  Receipt Date: 20161216
  Transmission Date: 20170206
  Serious: Yes (Other)
  Sender: FDA-Public Use
  Company Number: PHHY2015DK157197

PATIENT
  Age: 49 Year
  Sex: Male

DRUGS (3)
  1. CIRCADIN [Concomitant]
     Active Substance: MELATONIN
     Indication: PRODUCT USED FOR UNKNOWN INDICATION
     Dosage: STYRKE: 2 MG. DOSIS OG INDIKATION IKKE OPLYST.
     Route: 048
     Dates: end: 20110905
  2. GABAPENTIN. [Suspect]
     Active Substance: GABAPENTIN
     Indication: PAIN
     Dosage: DOSIS ?GES I TIDSPERIODEN.
     Route: 048
     Dates: start: 20110905, end: 20111002
  3. MAGNESIA ^DAK^ [Concomitant]
     Indication: CONSTIPATION
     Dosage: STYRKE: 500 MG. DOSIS 500 - 1000 MG VED BEHOV.
     Route: 048
     Dates: start: 20110905

REACTIONS (9)
  - Dizziness [Recovering/Resolving]
  - Pruritus [Not Recovered/Not Resolved]
  - Restlessness [Not Recovered/Not Resolved]
  - Sleep disorder [Not Recovered/Not Resolved]
  - Erectile dysfunction [Not Recovered/Not Resolved]
  - Lethargy [Not Recovered/Not Resolved]
  - Fatigue [Not Recovered/Not Resolved]
  - Sensory disturbance [Not Recovered/Not Resolved]
  - Muscle spasms [Not Recovered/Not Resolved]

NARRATIVE: CASE EVENT DATE: 201109
